FAERS Safety Report 4915684-9 (Version None)
Quarter: 2006Q1

REPORT INFORMATION
  Report Type: 
  Country: None (occurrence: None)
  Receive Date: 20060214
  Receipt Date: 20060206
  Transmission Date: 20060701
  Serious: Yes (Hospitalization, Disabling)
  Sender: FDA-Public Use
  Company Number: TPA2006A00198

PATIENT
  Age: 62 Year
  Sex: Female
  Weight: 106.5953 kg

DRUGS (13)
  1. ACTOS [Suspect]
     Indication: DIABETES MELLITUS NON-INSULIN-DEPENDENT
     Dosage: 15 MG, 1 IN 1 D, PER ORAL
     Route: 048
     Dates: start: 19990101
  2. METFORMIN (METFORMIN) (1000 MILLIGRAM, TABLETS) [Concomitant]
  3. LISINOPRIL (LISINOPRIL) (5 MILLIGRAM) [Concomitant]
  4. GLYBURIDE [Concomitant]
  5. FLUOXETINE (FLUOXETINE) (40 MILLIGRAM) [Concomitant]
  6. WELLBUTRIN (BUPROPION HYDROCHLORIDE) (150 MILLIGRAM) [Concomitant]
  7. LOVASTATIN (LOVASTATIN) (10 MILLIGRAM, TABLETS) [Concomitant]
  8. ESTRADIOL [Concomitant]
  9. OMEPRAZOLE (OMEPRAZOLE) (40 MILLIGRAM) [Concomitant]
  10. LORATADINE (LORATADINE) (10 MILLIGRAM) [Concomitant]
  11. GABAPENTIN (GABAPENTIN) (300 MILLIGRAM, TABLETS) [Concomitant]
  12. INSULIN [Concomitant]
  13. BUTALBITAL [Concomitant]

REACTIONS (9)
  - DEPRESSION [None]
  - DIABETES MELLITUS INADEQUATE CONTROL [None]
  - FALL [None]
  - HEADACHE [None]
  - HIP ARTHROPLASTY [None]
  - HIP FRACTURE [None]
  - LOWER LIMB FRACTURE [None]
  - NEUROPATHY [None]
  - UPPER LIMB FRACTURE [None]
